FAERS Safety Report 17799865 (Version 1)
Quarter: 2020Q2

REPORT INFORMATION
  Report Type: Spontaneous
  Country: FR (occurrence: FR)
  Receive Date: 20200518
  Receipt Date: 20200518
  Transmission Date: 20200714
  Serious: Yes (Hospitalization)
  Sender: FDA-Public Use
  Company Number: NVSC2020FR134604

PATIENT
  Age: 22 Year
  Sex: Female
  Weight: 56 kg

DRUGS (1)
  1. PARACETAMOL [Suspect]
     Active Substance: ACETAMINOPHEN
     Indication: INTENTIONAL OVERDOSE
     Dosage: 16 G, 1 TOTAL
     Route: 048
     Dates: start: 20200130, end: 20200130

REACTIONS (4)
  - Abdominal pain [Recovered/Resolved]
  - Poisoning deliberate [Recovered/Resolved]
  - Acute hepatic failure [Recovered/Resolved]
  - Vomiting [Recovered/Resolved]

NARRATIVE: CASE EVENT DATE: 20200130
